FAERS Safety Report 10478458 (Version 3)
Quarter: 2015Q1

REPORT INFORMATION
  Report Type: Spontaneous
  Country: US (occurrence: US)
  Receive Date: 20140926
  Receipt Date: 20150327
  Transmission Date: 20150720
  Serious: Yes (Death, Hospitalization, Other)
  Sender: FDA-Public Use
  Company Number: US-PFIZER INC-2014264552

PATIENT
  Age: 94 Year
  Sex: Female

DRUGS (1)
  1. REVATIO [Suspect]
     Active Substance: SILDENAFIL CITRATE
     Indication: CARDIAC DISORDER
     Dosage: UNK

REACTIONS (4)
  - Cardiac disorder [Unknown]
  - Myocardial infarction [Fatal]
  - Pneumothorax [Fatal]
  - Condition aggravated [Unknown]
